FAERS Safety Report 24620044 (Version 1)
Quarter: 2024Q4

REPORT INFORMATION
  Report Type: Spontaneous
  Country: GB (occurrence: GB)
  Receive Date: 20241114
  Receipt Date: 20241114
  Transmission Date: 20250114
  Serious: Yes (Hospitalization, Other)
  Sender: ELI LILLY AND COMPANY
  Company Number: None

PATIENT
  Age: 22 Year
  Sex: Female
  Weight: 101 kg

DRUGS (1)
  1. MOUNJARO [Suspect]
     Active Substance: TIRZEPATIDE
     Indication: Weight control
     Dosage: UNK UNK, UNKNOWN
     Route: 065

REACTIONS (6)
  - Cholelithiasis [Recovering/Resolving]
  - Urinary tract infection [Unknown]
  - Blood urine present [Unknown]
  - Haemorrhage urinary tract [Unknown]
  - Hepatic function abnormal [Unknown]
  - Constipation [Unknown]
